FAERS Safety Report 23867664 (Version 1)
Quarter: 2024Q2

REPORT INFORMATION
  Report Type: Spontaneous
  Country: FR (occurrence: FR)
  Receive Date: 20240517
  Receipt Date: 20240517
  Transmission Date: 20240715
  Serious: Yes (Life-Threatening)
  Sender: FDA-Public Use
  Company Number: None

PATIENT
  Age: 70 Year
  Sex: Female
  Weight: 114 kg

DRUGS (8)
  1. SPEVIGO [Suspect]
     Active Substance: SPESOLIMAB-SBZO
     Indication: Psoriasis
     Route: 042
     Dates: start: 20230908, end: 20230908
  2. SORIATANE [Concomitant]
     Active Substance: ACITRETIN
     Indication: Pustular psoriasis
     Dosage: 2 TABLETS IN THE EVENING I.E. 20MG EVERY NIGHT FOR 7 DAYS THEN TRY TO MAKE ONE EVENING 20MG AND ONE
     Route: 048
     Dates: start: 20230928, end: 20231220
  3. SORIATANE [Concomitant]
     Active Substance: ACITRETIN
     Route: 048
     Dates: start: 20231220
  4. LEVOTHYROXINE SODIUM [Concomitant]
     Active Substance: LEVOTHYROXINE SODIUM
     Indication: Product used for unknown indication
  5. MICARDIS [Concomitant]
     Active Substance: TELMISARTAN
     Indication: Product used for unknown indication
  6. JANUVIA [Concomitant]
     Active Substance: SITAGLIPTIN PHOSPHATE
     Indication: Product used for unknown indication
  7. LIPTRUZET (Ezetimibe+Atorvastatin) [Concomitant]
     Indication: Product used for unknown indication
  8. ZELITREX (Valaciclovir) [Concomitant]
     Indication: Product used for unknown indication

REACTIONS (1)
  - Invasive ductal breast carcinoma [Not Recovered/Not Resolved]

NARRATIVE: CASE EVENT DATE: 20240419
